FAERS Safety Report 6451395-9 (Version None)
Quarter: 2009Q4

REPORT INFORMATION
  Report Type: 
  Country: None (occurrence: None)
  Receive Date: 20091123
  Receipt Date: 20081112
  Transmission Date: 20100525
  Serious: No
  Sender: FDA-Public Use
  Company Number: US-AMGEN-US318637

PATIENT
  Sex: Female

DRUGS (2)
  1. ENBREL [Suspect]
     Indication: RHEUMATOID ARTHRITIS
     Route: 058
     Dates: start: 20081014
  2. METHOTREXATE [Concomitant]
     Route: 048
     Dates: start: 20080301

REACTIONS (4)
  - COUGH [None]
  - EAR INFECTION [None]
  - NASOPHARYNGITIS [None]
  - SINUSITIS [None]
